FAERS Safety Report 6221520-3 (Version None)
Quarter: 2009Q2

REPORT INFORMATION
  Report Type: 
  Country: None (occurrence: None)
  Receive Date: 20090610
  Receipt Date: 20090602
  Transmission Date: 20091009
  Serious: Yes (Other)
  Sender: FDA-Public Use
  Company Number: PHHY2009DE21619

PATIENT
  Sex: Female

DRUGS (6)
  1. ZOMETA [Suspect]
     Dosage: UNK
     Route: 042
     Dates: start: 20050201, end: 20080301
  2. CHEMOTHERAPEUTICS [Concomitant]
     Dosage: UNK
     Dates: start: 20070320, end: 20070905
  3. TAMOXIFEN CITRATE [Concomitant]
  4. ARIMIDEX [Concomitant]
  5. FASLODEX [Concomitant]
  6. LEKTINOL [Concomitant]

REACTIONS (4)
  - DEBRIDEMENT [None]
  - DENTAL OPERATION [None]
  - OSTEONECROSIS [None]
  - TOOTH EXTRACTION [None]
